FAERS Safety Report 7810453-4 (Version None)
Quarter: 2011Q4

REPORT INFORMATION
  Report Type: 
  Country: None (occurrence: None)
  Receive Date: 20111012
  Receipt Date: 20111005
  Transmission Date: 20120403
  Serious: Yes (Hospitalization, Other)
  Sender: FDA-Public Use
  Company Number: US-MERCK-1102USA01703

PATIENT
  Age: 63 Year
  Sex: Female

DRUGS (6)
  1. FOSAMAX [Suspect]
     Indication: OSTEOPOROSIS
     Route: 048
     Dates: start: 20040101
  2. FOSAMAX [Suspect]
     Indication: OSTEOPOROSIS PROPHYLAXIS
     Route: 048
     Dates: start: 20040101
  3. COZAAR [Concomitant]
     Indication: HYPERTENSION
     Route: 048
     Dates: start: 20070401, end: 20091101
  4. CLIMARA [Concomitant]
     Route: 065
     Dates: start: 20070401
  5. LORATADINE [Concomitant]
     Indication: SEASONAL ALLERGY
     Route: 065
  6. LISINOPRIL [Concomitant]
     Route: 048
     Dates: start: 20040901, end: 20070301

REACTIONS (34)
  - DIABETES MELLITUS [None]
  - TENDONITIS [None]
  - SWELLING [None]
  - UTERINE DISORDER [None]
  - BONE METABOLISM DISORDER [None]
  - ONYCHOMYCOSIS [None]
  - HYPERCHOLESTEROLAEMIA [None]
  - DEPRESSION [None]
  - FEMUR FRACTURE [None]
  - MENISCUS LESION [None]
  - CONSTIPATION [None]
  - FALL [None]
  - BLOOD MAGNESIUM DECREASED [None]
  - INSOMNIA [None]
  - BURSITIS [None]
  - FLUID OVERLOAD [None]
  - BLOOD CHOLESTEROL INCREASED [None]
  - INFECTION [None]
  - SINUS DISORDER [None]
  - ROTATOR CUFF SYNDROME [None]
  - METASTATIC NEOPLASM [None]
  - OVARIAN CYST [None]
  - GALLBLADDER DISORDER [None]
  - ANGIOPATHY [None]
  - CARPAL TUNNEL SYNDROME [None]
  - CATARACT [None]
  - BLOOD POTASSIUM DECREASED [None]
  - RECTAL FISSURE [None]
  - OSTEOARTHRITIS [None]
  - BLOOD SODIUM DECREASED [None]
  - LUNG NEOPLASM MALIGNANT [None]
  - ANXIETY [None]
  - OSTEOPENIA [None]
  - CYST [None]
